FAERS Safety Report 9929759 (Version 2)
Quarter: 2014Q2

REPORT INFORMATION
  Report Type: Spontaneous
  Country: US (occurrence: US)
  Receive Date: 20140227
  Receipt Date: 20140410
  Transmission Date: 20141212
  Serious: No
  Sender: FDA-Public Use
  Company Number: US-TEVA-465846USA

PATIENT
  Age: 18 Year
  Sex: Female
  Weight: 56.75 kg

DRUGS (1)
  1. PLAN B ONE-STEP [Suspect]
     Indication: POST COITAL CONTRACEPTION
     Dosage: 1.5 MILLIGRAM DAILY;
     Route: 048
     Dates: start: 20140211, end: 20140211

REACTIONS (3)
  - Breast enlargement [Recovered/Resolved]
  - Acne [Recovered/Resolved]
  - Vaginal haemorrhage [Recovered/Resolved]
